FAERS Safety Report 9154162 (Version 1)
Quarter: 2013Q1

REPORT INFORMATION
  Report Type: Spontaneous
  Country: US (occurrence: None)
  Receive Date: 20130308
  Receipt Date: 20130308
  Transmission Date: 20140127
  Serious: No
  Sender: FDA-Public Use
  Company Number: None

PATIENT
  Age: 80 Year
  Sex: Male
  Weight: 77.11 kg

DRUGS (1)
  1. AMLODIPINE [Suspect]
     Indication: CARDIOVASCULAR DISORDER
     Dosage: ONE TABLET DAILY ORAL?JAN. 20 TO FEB. 6, 2013
     Route: 048
     Dates: start: 20130120, end: 20130206

REACTIONS (7)
  - Arrhythmia [None]
  - Local swelling [None]
  - Local swelling [None]
  - Heart rate irregular [None]
  - Palpitations [None]
  - Product substitution issue [None]
  - Product quality issue [None]
